FAERS Safety Report 5092459-4 (Version None)
Quarter: 2006Q3

REPORT INFORMATION
  Report Type: 
  Country: None (occurrence: None)
  Receive Date: 20060830
  Receipt Date: 20060630
  Transmission Date: 20061208
  Serious: Yes (Death)
  Sender: FDA-Public Use
  Company Number: JP-SP-2006-01629

PATIENT
  Age: 84 Year
  Sex: Female

DRUGS (6)
  1. IMMUCYST [Suspect]
     Indication: BLADDER CANCER
     Route: 043
     Dates: start: 20060515, end: 20060606
  2. IMMUCYST [Suspect]
     Route: 043
     Dates: start: 20060515, end: 20060606
  3. NIFEDIPINE [Concomitant]
  4. SODIUM AZULENE SULFONATE L-GLUTAMINE [Concomitant]
  5. MAGNESIUM OXIDE [Concomitant]
  6. SENNOSIDE [Concomitant]

REACTIONS (5)
  - CYSTITIS [None]
  - DEPRESSED LEVEL OF CONSCIOUSNESS [None]
  - DYSURIA [None]
  - POLLAKIURIA [None]
  - SUBARACHNOID HAEMORRHAGE [None]
